FAERS Safety Report 5258417-1 (Version None)
Quarter: 2007Q1

REPORT INFORMATION
  Report Type: 
  Country: None (occurrence: None)
  Receive Date: 20070308
  Receipt Date: 20070301
  Transmission Date: 20070707
  Serious: Yes (Hospitalization)
  Sender: FDA-Public Use
  Company Number: CH-JNJFOC-20040806962

PATIENT
  Age: 40 Year
  Sex: Male

DRUGS (5)
  1. REMICADE [Suspect]
     Indication: PSORIATIC ARTHROPATHY
     Route: 042
  2. IBUPROFEN [Suspect]
     Indication: ARTHRALGIA
     Route: 048
  3. DAFALGAN [Suspect]
     Indication: PYREXIA
     Route: 042
  4. RIMIFON [Concomitant]
     Indication: TUBERCULOSIS
     Route: 048
  5. BENADON [Concomitant]
     Indication: TUBERCULOSIS
     Route: 048

REACTIONS (8)
  - ARTHRITIS [None]
  - CONDITION AGGRAVATED [None]
  - DERMATITIS EXFOLIATIVE [None]
  - EOSINOPHILIA [None]
  - GOUT [None]
  - INFLAMMATION [None]
  - OEDEMA PERIPHERAL [None]
  - PYREXIA [None]
